FAERS Safety Report 5580134-9 (Version None)
Quarter: 2007Q4

REPORT INFORMATION
  Report Type: 
  Country: None (occurrence: None)
  Receive Date: 20071227
  Receipt Date: 20071227
  Transmission Date: 20080405
  Serious: Yes (Other)
  Sender: FDA-Public Use
  Company Number: None

PATIENT
  Sex: Female

DRUGS (2)
  1. LOVENOX [Suspect]
     Dosage: 40 MG EVERY DAY SQ
     Route: 058
  2. HEPARIN [Suspect]
     Dosage: 5000 UNITS 3X DAY SQ
     Route: 058

REACTIONS (1)
  - ACTIVATED PARTIAL THROMBOPLASTIN TIME PROLONGED [None]
